FAERS Safety Report 9072329 (Version 1)
Quarter: 2013Q1

REPORT INFORMATION
  Report Type: Report from Study
  Country: US (occurrence: US)
  Receive Date: 20130129
  Receipt Date: 20130129
  Transmission Date: 20140127
  Serious: No
  Sender: FDA-Public Use
  Company Number: US-ABBOTT-12P-163-0938395-00

PATIENT
  Sex: Female
  Weight: 63.56 kg

DRUGS (6)
  1. HUMIRA 40 MG/0.8 ML PEN [Suspect]
     Indication: CROHN^S DISEASE
     Route: 058
     Dates: start: 20110222
  2. TEGRETOL [Concomitant]
     Indication: PRODUCT USED FOR UNKNOWN INDICATION
  3. AMITIPTYLINE [Concomitant]
     Indication: PRODUCT USED FOR UNKNOWN INDICATION
  4. PREDNISONE [Concomitant]
     Indication: CROHN^S DISEASE
  5. MULTIVITAMIN [Concomitant]
     Indication: VITAMIN SUPPLEMENTATION
  6. UNKNOWN BLOOD PRESSURE MEDICATION [Concomitant]
     Indication: HYPERTENSION

REACTIONS (1)
  - Rectal discharge [Not Recovered/Not Resolved]
